FAERS Safety Report 4496339-4 (Version None)
Quarter: 2004Q4

REPORT INFORMATION
  Report Type: 
  Country: None (occurrence: None)
  Receive Date: 20041109
  Receipt Date: 20040728
  Transmission Date: 20050328
  Serious: Yes (Hospitalization)
  Sender: FDA-Public Use
  Company Number: PHHO2004FR10617

PATIENT
  Age: 36 Year
  Sex: Male
  Weight: 70 kg

DRUGS (9)
  1. FTY720 VS MYCOPHENOLATE MOFETIL [Suspect]
     Indication: RENAL TRANSPLANT
     Dosage: CODE NOT BROKEN
     Route: 048
     Dates: start: 20040630
  2. NEORAL [Suspect]
     Indication: RENAL TRANSPLANT
     Dosage: 800MG/DAY
     Route: 048
     Dates: start: 20040726
  3. NEORAL [Suspect]
     Dosage: 650MG/DAY
     Route: 048
     Dates: start: 20040727, end: 20040728
  4. NEORAL [Suspect]
     Dosage: 550MG/DAY
     Dates: start: 20040729, end: 20040729
  5. NEORAL [Suspect]
     Dosage: 500MG/DAY
     Dates: start: 20040720, end: 20040804
  6. NEORAL [Suspect]
     Dosage: 450MG/DAY
     Route: 048
     Dates: start: 20040805, end: 20040813
  7. NEORAL [Suspect]
     Dosage: 170 MG, BID
     Dates: start: 20040831
  8. PREDNISOLONE [Concomitant]
     Indication: RENAL TRANSPLANT
     Dosage: 27.5 MG, QD
     Route: 048
     Dates: start: 20040728
  9. PREDNISOLONE [Concomitant]
     Dosage: 10 MG, QD
     Route: 048
     Dates: start: 20040904

REACTIONS (7)
  - BLOOD BILIRUBIN INCREASED [None]
  - BLOOD CREATININE INCREASED [None]
  - GAMMA-GLUTAMYLTRANSFERASE [None]
  - NAUSEA [None]
  - RENAL INTERSTITIAL FIBROSIS [None]
  - THERAPEUTIC AGENT TOXICITY [None]
  - VOMITING [None]
